FAERS Safety Report 10488208 (Version 5)
Quarter: 2015Q1

REPORT INFORMATION
  Report Type: Spontaneous
  Country: IT (occurrence: IT)
  Receive Date: 20141002
  Receipt Date: 20150119
  Transmission Date: 20150720
  Serious: Yes (Hospitalization)
  Sender: FDA-Public Use
  Company Number: IT-ACCORD-026230

PATIENT
  Age: 53 Year
  Sex: Female
  Weight: 60 kg

DRUGS (6)
  1. ONDANSETRON B. BRAUN [Concomitant]
     Indication: PREMEDICATION
     Dosage: STRENGTH: 2 MG/ML
     Route: 042
     Dates: start: 20140818, end: 20140915
  2. SOLDESAM [Concomitant]
     Active Substance: DEXAMETHASONE
     Indication: PREMEDICATION
     Dosage: STRENGTH: 4 MG/ML
     Route: 042
     Dates: start: 20140818, end: 20140922
  3. ZARZIO [Concomitant]
     Active Substance: FILGRASTIM
     Indication: NEUTROPENIA
     Dosage: STRENGTH: 60 MU/ML
     Route: 058
     Dates: start: 20140826, end: 20140923
  4. MITOMYCIN C [Suspect]
     Active Substance: MITOMYCIN
     Indication: MALIGNANT ANORECTAL NEOPLASM
     Dosage: MITOMYCIN C ^10 MG POWDER FOR SOLUTION FOR INJECTION^ 1 BOTTLE.
     Route: 042
     Dates: start: 20140818, end: 20140915
  5. FLUOROURACIL AHCL [Suspect]
     Active Substance: FLUOROURACIL
     Indication: MALIGNANT ANORECTAL NEOPLASM
     Dosage: FLUOROURACIL AHCL ^50 MG/ML SOLUTION FOR INJECTION OR INFUSION^ 1 VIAL IN GLASS 100 ML
     Route: 042
     Dates: start: 20140818, end: 20140915
  6. RANITIDINA ANGENERICO [Concomitant]
     Active Substance: RANITIDINE HYDROCHLORIDE
     Indication: PREMEDICATION
     Dosage: STRENGTH: 50 MG/5 ML
     Route: 042
     Dates: start: 20140818, end: 20140922

REACTIONS (2)
  - Proctalgia [Unknown]
  - Pancytopenia [Recovered/Resolved with Sequelae]

NARRATIVE: CASE EVENT DATE: 20140925
